FAERS Safety Report 21961943 (Version 8)
Quarter: 2024Q1

REPORT INFORMATION
  Report Type: Spontaneous
  Country: BR (occurrence: BR)
  Receive Date: 20230207
  Receipt Date: 20240229
  Transmission Date: 20240410
  Serious: Yes (Hospitalization, Other)
  Sender: FDA-Public Use
  Company Number: BR-GLAXOSMITHKLINE-BR2022AMR174944

PATIENT

DRUGS (3)
  1. NUCALA [Suspect]
     Active Substance: MEPOLIZUMAB
     Indication: Asthma
     Dosage: 100 MG, Q4W,  EVERY4 WEEKS
     Route: 058
     Dates: start: 20221104
  2. NUCALA [Suspect]
     Active Substance: MEPOLIZUMAB
     Indication: Asthma
     Dosage: UNK
     Dates: start: 20230205
  3. ALBUTEROL [Suspect]
     Active Substance: ALBUTEROL
     Indication: Product used for unknown indication
     Dosage: UNK

REACTIONS (30)
  - Dyspnoea [Not Recovered/Not Resolved]
  - Cardiac arrest [Unknown]
  - Hypoxia [Unknown]
  - Asthmatic crisis [Unknown]
  - Feeling hot [Recovered/Resolved]
  - Micturition urgency [Recovered/Resolved]
  - Asthenia [Not Recovered/Not Resolved]
  - Adverse drug reaction [Unknown]
  - Fear [Unknown]
  - Asthma [Unknown]
  - Cough [Unknown]
  - Feeling abnormal [Unknown]
  - Bronchitis [Unknown]
  - Productive cough [Unknown]
  - Dysstasia [Unknown]
  - Feeding disorder [Unknown]
  - Gait inability [Unknown]
  - Heart rate increased [Unknown]
  - Administration site pain [Unknown]
  - Mobility decreased [Unknown]
  - Decreased activity [Unknown]
  - Malaise [Recovered/Resolved]
  - Illness [Recovered/Resolved]
  - Drug ineffective [Unknown]
  - Intentional dose omission [Unknown]
  - Circumstance or information capable of leading to medication error [Unknown]
  - Inappropriate schedule of product administration [Unknown]
  - Product availability issue [Unknown]
  - Product dose omission issue [Unknown]
  - Product complaint [Unknown]
